FAERS Safety Report 25763682 (Version 1)
Quarter: 2025Q3

REPORT INFORMATION
  Report Type: Spontaneous
  Country: US (occurrence: US)
  Receive Date: 20250905
  Receipt Date: 20250905
  Transmission Date: 20251020
  Serious: No
  Sender: DOMPE FARMACEUTICI
  Company Number: US-FARMAPROD-202411-3927

PATIENT
  Age: 44 Year
  Sex: Female

DRUGS (11)
  1. OXERVATE [Suspect]
     Active Substance: CENEGERMIN-BKBJ
     Indication: Neurotrophic keratopathy
     Route: 047
     Dates: start: 20240926
  2. CIMETIDINE [Concomitant]
     Active Substance: CIMETIDINE
  3. MAVENCLAD [Concomitant]
     Active Substance: CLADRIBINE
  4. GLUCOSAMINE SULFATE [Concomitant]
     Active Substance: GLUCOSAMINE SULFATE
  5. BLINK TEARS [Concomitant]
     Active Substance: POLYETHYLENE GLYCOL 400
  6. ALLEGRA D-12 HOUR [Concomitant]
     Active Substance: FEXOFENADINE HYDROCHLORIDE\PSEUDOEPHEDRINE HYDROCHLORIDE
  7. IBUPROFEN [Concomitant]
     Active Substance: IBUPROFEN
  8. TYLENOL [Concomitant]
     Active Substance: ACETAMINOPHEN
  9. TUMS [Concomitant]
     Active Substance: CALCIUM CARBONATE
  10. VITAMIN D3 [Concomitant]
     Active Substance: CHOLECALCIFEROL
  11. RESTASIS [Concomitant]
     Active Substance: CYCLOSPORINE

REACTIONS (1)
  - Eye pain [Unknown]

NARRATIVE: CASE EVENT DATE: 20241113
